FAERS Safety Report 21358671 (Version 1)
Quarter: 2022Q3

REPORT INFORMATION
  Report Type: Spontaneous
  Country: GB (occurrence: GB)
  Receive Date: 20220921
  Receipt Date: 20220921
  Transmission Date: 20221026
  Serious: Yes (Hospitalization)
  Sender: FDA-Public Use
  Company Number: GB-MHRA-MED-202209172349110970-PGYTH

PATIENT
  Sex: Female
  Weight: 75 kg

DRUGS (2)
  1. CIPROFLOXACIN [Suspect]
     Active Substance: CIPROFLOXACIN
     Indication: Diverticulitis
     Dosage: X 3 /DAY IV HOSPITAL ADMINISTRATION; (IV CIPRO ADMIN IN HOSPITAL X 5/DAYS)
     Route: 042
  2. CIPROFLOXACIN [Concomitant]
     Active Substance: CIPROFLOXACIN
     Indication: Diverticulitis
     Dosage: UNK
     Route: 065

REACTIONS (1)
  - Periarthritis [Not Recovered/Not Resolved]
